FAERS Safety Report 6121331-3 (Version None)
Quarter: 2009Q1

REPORT INFORMATION
  Report Type: 
  Country: None (occurrence: None)
  Receive Date: 20090313
  Receipt Date: 20090302
  Transmission Date: 20090719
  Serious: Yes (Hospitalization)
  Sender: FDA-Public Use
  Company Number: 8037804

PATIENT
  Age: 36 Year
  Sex: Female
  Weight: 102.3 kg

DRUGS (8)
  1. CIMZIA [Suspect]
     Indication: CROHN'S DISEASE
     Dates: start: 20080501, end: 20081101
  2. DARVOCET [Concomitant]
  3. PENTASA [Concomitant]
  4. VITAMIN B-12 [Concomitant]
  5. VITAMIN D [Concomitant]
  6. ZOLOFT [Concomitant]
  7. MEDROL [Concomitant]
  8. PREDNISONE [Concomitant]

REACTIONS (10)
  - DEHYDRATION [None]
  - FIBROMYALGIA [None]
  - FURUNCLE [None]
  - NAUSEA [None]
  - PANNICULITIS [None]
  - PARONYCHIA [None]
  - RASH [None]
  - STAPHYLOCOCCAL INFECTION [None]
  - VASCULITIS [None]
  - VOMITING [None]
